FAERS Safety Report 15138884 (Version 1)
Quarter: 2018Q3

REPORT INFORMATION
  Report Type: Spontaneous
  Country: AU (occurrence: AU)
  Receive Date: 20180713
  Receipt Date: 20180713
  Transmission Date: 20181010
  Serious: Yes (Other)
  Sender: FDA-Public Use
  Company Number: AU-TEVA-2018-AU-924682

PATIENT
  Sex: Male

DRUGS (7)
  1. QUETIAPINE FUMARATE. [Suspect]
     Active Substance: QUETIAPINE FUMARATE
     Route: 065
  2. LAMIVUDINE. [Suspect]
     Active Substance: LAMIVUDINE
     Route: 065
  3. RALTEGRAVIR. [Suspect]
     Active Substance: RALTEGRAVIR
     Route: 065
  4. ETRAVIRINE [Suspect]
     Active Substance: ETRAVIRINE
     Route: 065
  5. PREZISTA [Suspect]
     Active Substance: DARUNAVIR ETHANOLATE
     Route: 065
  6. LAMOTRIGINE. [Concomitant]
     Active Substance: LAMOTRIGINE
  7. RITONAVIR. [Suspect]
     Active Substance: RITONAVIR
     Route: 065

REACTIONS (5)
  - Viral load increased [Unknown]
  - Oesophageal candidiasis [Unknown]
  - Osteoporosis [Unknown]
  - Blood cholesterol increased [Unknown]
  - Myopathy [Unknown]
